FAERS Safety Report 5376108-3 (Version None)
Quarter: 2007Q3

REPORT INFORMATION
  Report Type: 
  Country: None (occurrence: None)
  Receive Date: 20070702
  Receipt Date: 20070620
  Transmission Date: 20080115
  Serious: Yes (Death, Hospitalization)
  Sender: FDA-Public Use
  Company Number: B0459390A

PATIENT
  Age: 86 Year
  Sex: Male
  Weight: 90 kg

DRUGS (4)
  1. ARIXTRA [Suspect]
     Dosage: 7.5MG PER DAY
     Route: 058
     Dates: start: 20070101, end: 20070201
  2. RISPERDAL [Concomitant]
     Indication: AGITATION
     Dosage: 1MG THREE TIMES PER DAY
  3. CORDARONE [Concomitant]
     Indication: ATRIAL FIBRILLATION
  4. XATRAL [Concomitant]
     Indication: BENIGN PROSTATIC HYPERPLASIA
     Dosage: 10MG PER DAY

REACTIONS (5)
  - ANAEMIA [None]
  - CRUSH SYNDROME [None]
  - ECCHYMOSIS [None]
  - OFF LABEL USE [None]
  - RENAL FAILURE ACUTE [None]
